FAERS Safety Report 6025397-0 (Version None)
Quarter: 2008Q4

REPORT INFORMATION
  Report Type: 
  Country: None (occurrence: None)
  Receive Date: 20081224
  Receipt Date: 20081217
  Transmission Date: 20090506
  Serious: Yes (Hospitalization)
  Sender: FDA-Public Use
  Company Number: 2008PV037311

PATIENT
  Age: 70 Year
  Sex: Male

DRUGS (3)
  1. SYMLIN [Suspect]
     Indication: DIABETES MELLITUS
     Dosage: 60 MCG; BID; SC
     Route: 058
     Dates: end: 20081215
  2. NOVOLOG MIX 70/30 [Concomitant]
  3. LANTUS [Concomitant]

REACTIONS (1)
  - HYPERGLYCAEMIA [None]
